FAERS Safety Report 5945974-2 (Version None)
Quarter: 2008Q4

REPORT INFORMATION
  Report Type: 
  Country: None (occurrence: None)
  Receive Date: 20081106
  Receipt Date: 20081021
  Transmission Date: 20090506
  Serious: Yes (Death)
  Sender: FDA-Public Use
  Company Number: 8031648

PATIENT
  Age: 25 Year
  Sex: Female
  Weight: 70 kg

DRUGS (4)
  1. KEPPRA [Suspect]
     Indication: POST-TRAUMATIC EPILEPSY
     Dosage: 500 MG 2/D PO
     Route: 048
     Dates: start: 20080328, end: 20080402
  2. NEXIUM [Concomitant]
  3. LEVOTHYROXINE SODIUM [Concomitant]
  4. FRAXIPARIN [Concomitant]

REACTIONS (3)
  - CARDIAC ARREST [None]
  - HYPERSENSITIVITY [None]
  - LIP SWELLING [None]
